FAERS Safety Report 7458444 (Version 1)
Quarter: 2020Q3

REPORT INFORMATION
  Report Type: Spontaneous
  Country: DE (occurrence: DE)
  Receive Date: 20100708
  Receipt Date: 20100708
  Transmission Date: 20201105
  Serious: Yes (Hospitalization)
  Sender: FDA-Public Use
  Company Number: DE-ROCHE-713614

PATIENT
  Age: 71 Year
  Sex: Female
  Weight: 70 kg

DRUGS (6)
  1. ASPIRIN. [Concomitant]
     Active Substance: ASPIRIN
  2. AVASTIN [Suspect]
     Active Substance: BEVACIZUMAB
     Indication: BREAST CANCER
     Dosage: CYCLE 2 ON 3?MAY?2010
     Route: 065
     Dates: start: 20100412, end: 20100503
  3. IBANDRONIC ACID. [Suspect]
     Active Substance: IBANDRONIC ACID
     Indication: BREAST CANCER
     Route: 065
     Dates: start: 20100414
  4. DOCETAXEL. [Suspect]
     Active Substance: DOCETAXEL
     Indication: BREAST CANCER
     Route: 065
     Dates: start: 20100412
  5. DOCETAXEL. [Suspect]
     Active Substance: DOCETAXEL
     Dosage: DOSAGE REDUCED, CYCLE 2 ON 3?MAY?2010
     Route: 065
     Dates: end: 20100503
  6. ANTICOAGULANT THERAPY [Concomitant]

REACTIONS (3)
  - Fall [Unknown]
  - Leukopenia [Unknown]
  - Dermatitis allergic [Recovered/Resolved]
